FAERS Safety Report 4621673-4 (Version None)
Quarter: 2005Q1

REPORT INFORMATION
  Report Type: 
  Country: None (occurrence: None)
  Receive Date: 20050329
  Receipt Date: 20050322
  Transmission Date: 20050727
  Serious: Yes (Life-Threatening)
  Sender: FDA-Public Use
  Company Number: 2004UW23125

PATIENT
  Age: 21 Year
  Sex: Male
  Weight: 51.3 kg

DRUGS (10)
  1. TOPROL-XL [Suspect]
     Indication: HYPERTENSION
     Dosage: 50 MG DAILY PO
     Route: 048
     Dates: start: 20041023, end: 20041027
  2. TOPROL-XL [Suspect]
     Indication: HYPERTENSION
     Dates: start: 20041101
  3. CARBATROL [Concomitant]
  4. NORVASC [Concomitant]
  5. CALCI-MIX [Concomitant]
  6. EPOGEN [Concomitant]
  7. LISINOPRIL [Concomitant]
  8. CALCIJEX [Concomitant]
  9. NEPHRORTE [Concomitant]
  10. VITAMINS NOS [Concomitant]

REACTIONS (2)
  - HAEMODIALYSIS [None]
  - HYPERKALAEMIA [None]
